APPROVED DRUG PRODUCT: GLYCOPYRROLATE
Active Ingredient: GLYCOPYRROLATE
Strength: 1MG
Dosage Form/Route: TABLET;ORAL
Application: A040568 | Product #001
Applicant: CHARTWELL RX SCIENCES LLC
Approved: Dec 22, 2004 | RLD: No | RS: No | Type: DISCN